FAERS Safety Report 9638938 (Version 1)
Quarter: 2013Q4

REPORT INFORMATION
  Report Type: Spontaneous
  Country: US (occurrence: US)
  Receive Date: 20131022
  Receipt Date: 20131022
  Transmission Date: 20140711
  Serious: No
  Sender: FDA-Public Use
  Company Number: US-TARO-2013P1001777

PATIENT
  Sex: Male

DRUGS (4)
  1. CLOTRIMAZOLE TOPICAL CREAM USP 1% [Suspect]
  2. KETOCONAZOLE [Concomitant]
  3. XANAX [Concomitant]
  4. EXELON [Concomitant]

REACTIONS (1)
  - Drug effect incomplete [Recovered/Resolved]
